FAERS Safety Report 19784480 (Version 2)
Quarter: 2021Q3

REPORT INFORMATION
  Report Type: Report from Study
  Country: US (occurrence: US)
  Receive Date: 20210903
  Receipt Date: 20210930
  Transmission Date: 20211014
  Serious: Yes (Other)
  Sender: FDA-Public Use
  Company Number: US-CLOVIS ONCOLOGY-CLO-2021-001220

PATIENT
  Age: 84 Year
  Sex: Female

DRUGS (1)
  1. RUBRACA [Suspect]
     Active Substance: RUCAPARIB CAMSYLATE
     Indication: MALIGNANT PERITONEAL NEOPLASM
     Dosage: 600 MILLIGRAM, BID
     Route: 048
     Dates: start: 20210720, end: 2021

REACTIONS (3)
  - Abdominal pain [Unknown]
  - Ascites [Recovering/Resolving]
  - Peripancreatic fluid collection [Unknown]

NARRATIVE: CASE EVENT DATE: 2021
